FAERS Safety Report 5940126-4 (Version None)
Quarter: 2008Q4

REPORT INFORMATION
  Report Type: 
  Country: None (occurrence: None)
  Receive Date: 20081104
  Receipt Date: 20081024
  Transmission Date: 20090506
  Serious: Yes (Hospitalization)
  Sender: FDA-Public Use
  Company Number: JP-JNJFOC-20081006725

PATIENT
  Age: 50 Year
  Sex: Female

DRUGS (3)
  1. REMICADE [Suspect]
     Route: 042
  2. REMICADE [Suspect]
     Indication: RHEUMATOID ARTHRITIS
     Dosage: ON INFLIIXMAB FOR APPROXIAMTELY 2 YEARS.
     Route: 042
  3. RHEUMATREX [Suspect]
     Indication: RHEUMATOID ARTHRITIS

REACTIONS (2)
  - LOCAL SWELLING [None]
  - PAIN IN EXTREMITY [None]
